FAERS Safety Report 8119789-3 (Version None)
Quarter: 2012Q1

REPORT INFORMATION
  Report Type: 
  Country: None (occurrence: None)
  Receive Date: 20120206
  Receipt Date: 20120206
  Transmission Date: 20120608
  Serious: Yes (Other)
  Sender: FDA-Public Use
  Company Number: None

PATIENT
  Sex: Female
  Weight: 76.8 kg

DRUGS (7)
  1. M.V.I. [Concomitant]
  2. DIGOXIN [Concomitant]
  3. ASCORBIC ACID [Concomitant]
  4. CRANBERRY TABLETS [Concomitant]
  5. PRADAXA [Suspect]
     Indication: ATRIAL FIBRILLATION
     Dosage: 150MG BID PO
     Route: 048
  6. CITRACAL [Concomitant]
  7. FISH OIL [Concomitant]

REACTIONS (5)
  - DYSPEPSIA [None]
  - DRUG INTOLERANCE [None]
  - PYREXIA [None]
  - ABDOMINAL PAIN [None]
  - DRUG DOSE OMISSION [None]
